FAERS Safety Report 6433185-6 (Version None)
Quarter: 2009Q4

REPORT INFORMATION
  Report Type: 
  Country: None (occurrence: None)
  Receive Date: 20091109
  Receipt Date: 20091105
  Transmission Date: 20100525
  Serious: Yes (Death)
  Sender: FDA-Public Use
  Company Number: PHEH2008US11600

PATIENT
  Sex: Female
  Weight: 56.4 kg

DRUGS (3)
  1. GLEEVEC [Suspect]
     Dosage: 200 MG, QD
     Route: 048
  2. AMBIEN [Concomitant]
     Indication: INSOMNIA
     Dosage: 2.5 MG, PRN
     Route: 048
  3. XALATAN [Suspect]
     Dosage: DAILY

REACTIONS (2)
  - ABDOMINAL PAIN UPPER [None]
  - INTRAOCULAR MELANOMA [None]
